FAERS Safety Report 13256017 (Version 1)
Quarter: 2017Q1

REPORT INFORMATION
  Report Type: Spontaneous
  Country: US (occurrence: US)
  Receive Date: 20170219
  Receipt Date: 20170219
  Transmission Date: 20170428
  Serious: Yes (Disabling)
  Sender: FDA-Public Use
  Company Number: None

PATIENT
  Age: 59 Year
  Sex: Female
  Weight: 102.1 kg

DRUGS (4)
  1. POLYETHYLENE GLYCOL 3350, NF PDR [Suspect]
     Active Substance: POLYETHYLENE GLYCOL 3350
     Indication: DIARRHOEA
     Dosage: ?          QUANTITY:14 SACHETS;?
     Route: 048
     Dates: start: 20161021, end: 20170130
  2. ATENOLOL. [Concomitant]
     Active Substance: ATENOLOL
  3. POLYETHYLENE GLYCOL 3350, NF PDR [Suspect]
     Active Substance: POLYETHYLENE GLYCOL 3350
     Indication: CONSTIPATION
     Dosage: ?          QUANTITY:14 SACHETS;?
     Route: 048
     Dates: start: 20161021, end: 20170130
  4. ESSENTIAL OILS. [Concomitant]
     Active Substance: ESSENTIAL OILS

REACTIONS (5)
  - Disturbance in attention [None]
  - Depression [None]
  - Feeling abnormal [None]
  - Impaired work ability [None]
  - Anxiety [None]

NARRATIVE: CASE EVENT DATE: 20170206
